FAERS Safety Report 18711456 (Version 1)
Quarter: 2021Q1

REPORT INFORMATION
  Report Type: Spontaneous
  Country: ES (occurrence: ES)
  Receive Date: 20210106
  Receipt Date: 20210106
  Transmission Date: 20210419
  Serious: Yes (Other)
  Sender: FDA-Public Use
  Company Number: None

PATIENT
  Age: 35 Year
  Sex: Male
  Weight: 84 kg

DRUGS (7)
  1. TILA TEA FOR NERVES [Concomitant]
  2. MULTIVITAMINS [Concomitant]
     Active Substance: VITAMINS
  3. OMEPRAZOL [Concomitant]
     Active Substance: OMEPRAZOLE
  4. MAGNESIUM TABLETS [Concomitant]
  5. ARCOXIA [Concomitant]
     Active Substance: ETORICOXIB
  6. ENBREL [Suspect]
     Active Substance: ETANERCEPT
     Indication: ARTHRITIS
     Dosage: ?          QUANTITY:1 INJECTION(S);OTHER FREQUENCY:3 WEEKS;?
     Route: 030
  7. ARAVA [Concomitant]
     Active Substance: LEFLUNOMIDE

REACTIONS (3)
  - Joint stiffness [None]
  - Inflammation [None]
  - Gait disturbance [None]

NARRATIVE: CASE EVENT DATE: 20210105
